FAERS Safety Report 9293480 (Version 4)
Quarter: 2014Q1

REPORT INFORMATION
  Report Type: Spontaneous
  Country: US (occurrence: US)
  Receive Date: 20130516
  Receipt Date: 20140226
  Transmission Date: 20141002
  Serious: Yes (Other)
  Sender: FDA-Public Use
  Company Number: US-BAYER-2013-059903

PATIENT
  Age: 27 Year
  Sex: Female
  Weight: 59 kg

DRUGS (3)
  1. MIRENA [Suspect]
     Indication: CONTRACEPTION
     Dosage: 20 MCG/24HR, CONT
     Route: 015
     Dates: start: 20100517, end: 20100526
  2. MOTRIN [Concomitant]
     Dosage: 800 MG, QID
  3. BUTALBITAL, ACETAMINOPHEN + CAFFEINE [Concomitant]
     Dosage: 5-500 MG EVERY 6 HOURS AS NEEDED

REACTIONS (6)
  - Uterine perforation [None]
  - Abdominal pain [None]
  - Injury [None]
  - Pain [None]
  - Emotional distress [None]
  - Oropharyngeal pain [None]
